FAERS Safety Report 15619291 (Version 2)
Quarter: 2018Q4

REPORT INFORMATION
  Report Type: Spontaneous
  Country: US (occurrence: US)
  Receive Date: 20181114
  Receipt Date: 20181213
  Transmission Date: 20190205
  Serious: No
  Sender: FDA-Public Use
  Company Number: US-AMGEN-USASP2018160204

PATIENT
  Age: 78 Year
  Sex: Female

DRUGS (1)
  1. REPATHA [Suspect]
     Active Substance: EVOLOCUMAB
     Indication: MUSCULOSKELETAL CHEST PAIN
     Dosage: 140 MG, Q2WK
     Route: 058

REACTIONS (2)
  - Off label use [Unknown]
  - Dizziness [Recovered/Resolved]
